FAERS Safety Report 16491327 (Version 1)
Quarter: 2019Q2

REPORT INFORMATION
  Report Type: Spontaneous
  Country: US (occurrence: US)
  Receive Date: 20190628
  Receipt Date: 20190628
  Transmission Date: 20190711
  Serious: Yes (Other)
  Sender: FDA-Public Use
  Company Number: US-SUN PHARMACEUTICAL INDUSTRIES LTD-2019R1-211791

PATIENT
  Sex: Female

DRUGS (2)
  1. AMBRISENTAN [Suspect]
     Active Substance: AMBRISENTAN
     Indication: PRODUCT USED FOR UNKNOWN INDICATION
     Dosage: 5 MILLIGRAM, QD
     Route: 048
     Dates: start: 20190510
  2. REVATIO [Concomitant]
     Active Substance: SILDENAFIL CITRATE
     Indication: PRODUCT USED FOR UNKNOWN INDICATION
     Dosage: UNK
     Route: 065

REACTIONS (16)
  - Dyspnoea [Unknown]
  - Eating disorder [Unknown]
  - Influenza [Unknown]
  - Abdominal pain [Unknown]
  - Diarrhoea [Unknown]
  - Alopecia [Unknown]
  - Palpitations [Unknown]
  - Insomnia [Unknown]
  - Feeling abnormal [Unknown]
  - Dehydration [Unknown]
  - Weight decreased [Unknown]
  - Peripheral swelling [Unknown]
  - Hypersensitivity [Unknown]
  - Vomiting [Unknown]
  - Housebound [Unknown]
  - Feeling cold [Unknown]

NARRATIVE: CASE EVENT DATE: 2019
